FAERS Safety Report 11074628 (Version 1)
Quarter: 2015Q2

REPORT INFORMATION
  Report Type: Spontaneous
  Country: US (occurrence: US)
  Receive Date: 20150429
  Receipt Date: 20150429
  Transmission Date: 20150821
  Serious: No
  Sender: FDA-Public Use
  Company Number: US-BIOGENIDEC-2015BI054279

PATIENT
  Sex: Female

DRUGS (1)
  1. AVONEX [Suspect]
     Active Substance: INTERFERON BETA-1A
     Indication: MULTIPLE SCLEROSIS
     Route: 030
     Dates: start: 20011226

REACTIONS (7)
  - Mood altered [Unknown]
  - Multiple sclerosis relapse [Unknown]
  - Depression [Unknown]
  - Coordination abnormal [Unknown]
  - Irritability [Unknown]
  - General symptom [Unknown]
  - Gait disturbance [Unknown]
